FAERS Safety Report 23597364 (Version 2)
Quarter: 2024Q1

REPORT INFORMATION
  Report Type: Report from Study
  Country: BE (occurrence: BE)
  Receive Date: 20240305
  Receipt Date: 20240320
  Transmission Date: 20240409
  Serious: Yes (Hospitalization, Other)
  Sender: FDA-Public Use
  Company Number: BE-PHARMAMAR-2024PM000151

PATIENT

DRUGS (25)
  1. LURBINECTEDIN [Suspect]
     Active Substance: LURBINECTEDIN
     Indication: Small cell lung cancer
     Dosage: 2 MILLIGRAM/SQ. METER, D1Q3W
     Route: 042
     Dates: start: 20231128, end: 20240131
  2. IRINOTECAN [Suspect]
     Active Substance: IRINOTECAN
     Indication: Small cell lung cancer
     Dosage: 75 MILLIGRAM/SQ. METER, D1D8Q3W
     Route: 042
     Dates: start: 20231128, end: 20240207
  3. LEVOTHYROXINE [Concomitant]
     Active Substance: LEVOTHYROXINE\LEVOTHYROXINE SODIUM
     Indication: Hypothyroidism
     Dosage: 125 MILLIGRAM, QD
     Route: 048
     Dates: start: 1995
  4. OMEPRAZOLE [Concomitant]
     Active Substance: OMEPRAZOLE
     Indication: Gastroduodenal ulcer
     Dosage: 20 MILLIGRAM, QD
     Route: 048
     Dates: start: 2000
  5. BIO RHUMAL FORTE [Concomitant]
     Indication: Arthritis
     Dosage: 750 MILLIGRAM, QD
     Route: 048
     Dates: start: 2017
  6. ALGELDRATE\SODIUM ALGINATE [Concomitant]
     Active Substance: ALGELDRATE\SODIUM ALGINATE
     Indication: Dyspepsia
     Dosage: 1 DOSAGE FORM, PRN
     Route: 048
     Dates: start: 2019
  7. CALCIUM CARBONATE [Concomitant]
     Active Substance: CALCIUM CARBONATE
     Indication: Dyspepsia
     Dosage: 1 DOSAGE FORM, PRN
     Route: 048
     Dates: start: 2019
  8. RENNIE [CALCIUM CARBONATE;DIMETICONE;MAGNESIUM CARBONATE] [Concomitant]
     Indication: Dyspepsia
     Dosage: 1 DOSAGE FORM, PRN
     Route: 048
     Dates: start: 2019
  9. VITAMINS NOS [Concomitant]
     Active Substance: VITAMINS
     Indication: Hypovitaminosis
     Dosage: 1 DOSAGE FORM, QD
     Route: 048
     Dates: start: 2020
  10. ASPIRIN [Concomitant]
     Active Substance: ASPIRIN
     Indication: Varicose vein operation
     Dosage: 80 MILLIGRAM, QD
     Route: 048
     Dates: start: 2021
  11. CALCIUM CARBONATE [Concomitant]
     Active Substance: CALCIUM CARBONATE
     Indication: Osteoporosis
     Dosage: 1.25 MILLIGRAM, QD
     Route: 048
     Dates: start: 2021
  12. UMECLIDINIUM BROMIDE\VILANTEROL TRIFENATATE [Concomitant]
     Active Substance: UMECLIDINIUM BROMIDE\VILANTEROL TRIFENATATE
     Indication: Chronic obstructive pulmonary disease
     Dosage: 1 DOSAGE FORM, QD
     Dates: start: 20211203
  13. FENOTEROL HYDROBROMIDE [Concomitant]
     Active Substance: FENOTEROL HYDROBROMIDE
     Indication: Chronic obstructive pulmonary disease
     Dosage: 1 DOSAGE FORM, PRN
     Dates: start: 20211203
  14. VITAMIN D NOS [Concomitant]
     Active Substance: VITAMIN D NOS
     Indication: Vitamin D deficiency
     Dosage: 1 DOSAGE FORM, QW
     Route: 048
     Dates: start: 20230314
  15. MELATONIN [Concomitant]
     Active Substance: MELATONIN
     Indication: Insomnia
     Dosage: 1 DOSAGE FORM, PRN
     Route: 048
     Dates: start: 202307
  16. DEXAMETHASONE [Concomitant]
     Active Substance: DEXAMETHASONE
     Indication: Prophylaxis of nausea and vomiting
     Dosage: 8 MILLIGRAM
     Route: 048
     Dates: start: 20231129
  17. DEXAMETHASONE [Concomitant]
     Active Substance: DEXAMETHASONE
     Dosage: 8 MILLIGRAM
     Route: 042
     Dates: start: 20240207, end: 20240207
  18. PRIMPERAN [Concomitant]
     Active Substance: METOCLOPRAMIDE HYDROCHLORIDE
     Indication: Nausea
     Dosage: 10 MILLIGRAM, PRN
     Route: 048
     Dates: start: 20231129
  19. DAFALGAN [Concomitant]
     Active Substance: ACETAMINOPHEN
     Indication: Headache
     Dosage: 1 GRAM, PRN
     Route: 048
     Dates: start: 20231208
  20. IMODIUM [Concomitant]
     Active Substance: LOPERAMIDE HYDROCHLORIDE
     Indication: Diarrhoea
     Dosage: 2 MILLIGRAM, PRN
     Route: 048
     Dates: start: 20231228
  21. ACETYLCYSTEINE [Concomitant]
     Active Substance: ACETYLCYSTEINE
     Indication: Cough
     Dosage: 600 MILLIGRAM, QD
     Route: 048
     Dates: start: 20240120
  22. NESIVINE [Concomitant]
     Indication: Rhinorrhoea
     Dosage: 1 DOSAGE FORM, PRN
     Route: 045
     Dates: start: 20240127
  23. MAGNESIUM FORTE [Concomitant]
     Indication: Muscle spasms
     Dosage: 2 DOSAGE FORM, PRN
     Route: 048
     Dates: start: 20240202
  24. ATROPINE SULFATE [Concomitant]
     Active Substance: ATROPINE SULFATE
     Indication: Prophylaxis against diarrhoea
     Dosage: 0.25 MILLIGRAM, QD
     Route: 058
     Dates: start: 20240207, end: 20240207
  25. ONDANSETRON [Concomitant]
     Active Substance: ONDANSETRON
     Indication: Prophylaxis of nausea and vomiting
     Dosage: 8 MILLIGRAM
     Route: 042
     Dates: start: 20240207, end: 20240207

REACTIONS (1)
  - Interstitial lung disease [Recovering/Resolving]

NARRATIVE: CASE EVENT DATE: 20240219
